FAERS Safety Report 25908394 (Version 1)
Quarter: 2025Q4

REPORT INFORMATION
  Report Type: Spontaneous
  Country: US (occurrence: US)
  Receive Date: 20251010
  Receipt Date: 20251010
  Transmission Date: 20260117
  Serious: No
  Sender: SPROUT PHARMACEUTICALS
  Company Number: US-Sprout Pharmaceuticals, Inc.-2024SP000284

PATIENT

DRUGS (2)
  1. ADDYI [Suspect]
     Active Substance: FLIBANSERIN
     Indication: Product used for unknown indication
     Dosage: RX # 4426750, 100 MILLIGRAM
     Route: 048
  2. ADDYI [Suspect]
     Active Substance: FLIBANSERIN
     Dosage: TAKES 1/2 A PILL AT ONCE, 50 MILLIGRAM
     Route: 048

REACTIONS (2)
  - Intentional product use issue [Unknown]
  - Somnolence [Unknown]
